FAERS Safety Report 19179902 (Version 7)
Quarter: 2023Q4

REPORT INFORMATION
  Report Type: Spontaneous
  Country: PL (occurrence: PL)
  Receive Date: 20210426
  Receipt Date: 20231226
  Transmission Date: 20240110
  Serious: Yes (Hospitalization, Other)
  Sender: FDA-Public Use
  Company Number: NVSC2021PL085209

PATIENT
  Age: 73 Year
  Sex: Female

DRUGS (13)
  1. CARBAMAZEPINE [Suspect]
     Active Substance: CARBAMAZEPINE
     Indication: Bipolar disorder
     Dosage: 225 MG IN GRADUALLY INCREASING DOSES (INITIALLY 225 MG, INCREASED TO 450 MG AFTER ONE WEEK)
     Route: 065
  2. CARBAMAZEPINE [Suspect]
     Active Substance: CARBAMAZEPINE
     Dosage: 450 MG, INCREASED AFTER A WEEK
     Route: 065
  3. FLUOXETINE [Interacting]
     Active Substance: FLUOXETINE HYDROCHLORIDE
     Indication: Bipolar disorder
     Dosage: 40 MG, QD CONTROLLED RELEASE (CR)
     Route: 065
  4. FLUOXETINE [Interacting]
     Active Substance: FLUOXETINE HYDROCHLORIDE
     Dosage: 20 MG, QD WHEN CARBAMAZEPINE ADDED (RECOMMENDED TO REDUCE THE FLUOXETINE DOSE TO 20 MG)
     Route: 065
  5. FLUOXETINE [Interacting]
     Active Substance: FLUOXETINE HYDROCHLORIDE
     Dosage: 150 MG (CONTROLLED RELEASE IN EVENING)
     Route: 065
  6. TRAZODONE [Concomitant]
     Active Substance: TRAZODONE HYDROCHLORIDE
     Indication: Bipolar disorder
     Dosage: 150 MG IN THE EVENING (IN THE FORM OF CONTROLLED RELEASE, AT A DOSE OF 150 MG IN THE EVENING)
     Route: 065
  7. TRAZODONE [Concomitant]
     Active Substance: TRAZODONE HYDROCHLORIDE
     Indication: Sleep disorder
     Dosage: 75 MG, QD
     Route: 065
  8. TRAZODONE [Concomitant]
     Active Substance: TRAZODONE HYDROCHLORIDE
     Dosage: UNK (ATTEMPTED TO REDUCE THE DOSE, BUT STAYED ON THE DOSE OF 150 MG)
     Route: 065
  9. LAMOTRIGINE [Concomitant]
     Active Substance: LAMOTRIGINE
     Indication: Bipolar disorder
     Dosage: 200 MG DAILY IN THE MORNING
     Route: 065
  10. LAMOTRIGINE [Concomitant]
     Active Substance: LAMOTRIGINE
     Dosage: 100 MG, QD (PATIENT REDUCED DOSE OF LAMOTRIGINE FROM 200 MG TO 100 MG ON ITS OWN)
     Route: 065
  11. LAMOTRIGINE [Concomitant]
     Active Substance: LAMOTRIGINE
     Dosage: 50 MG, QD
     Route: 065
  12. HYDROXYZINE [Concomitant]
     Active Substance: HYDROXYZINE HYDROCHLORIDE
     Indication: Anxiety
     Dosage: UNK, PRN (HYDROXYZINE AS NEEDED)
     Route: 065
  13. DIAZEPAM [Concomitant]
     Active Substance: DIAZEPAM
     Indication: Product used for unknown indication
     Dosage: 15 MG(DOSE OF 3 X 5 MG WAS TEMPORARILY ADDED TO TREATMENT)
     Route: 065

REACTIONS (16)
  - Vulval disorder [Recovered/Resolved]
  - Skin lesion [Recovered/Resolved]
  - Genital lesion [Recovered/Resolved]
  - Blister [Recovered/Resolved]
  - Rash pruritic [Recovered/Resolved]
  - Drug interaction [Unknown]
  - Stevens-Johnson syndrome [Recovered/Resolved]
  - Rash erythematous [Recovered/Resolved]
  - Drug level increased [Unknown]
  - Oral disorder [Recovered/Resolved]
  - Condition aggravated [Recovered/Resolved]
  - Sleep disorder [Recovered/Resolved]
  - Lip erythema [Recovered/Resolved]
  - Genital rash [Recovered/Resolved]
  - Rash [Recovered/Resolved]
  - Therapeutic product effect incomplete [Unknown]
